FAERS Safety Report 12272696 (Version 1)
Quarter: 2016Q2

REPORT INFORMATION
  Report Type: Spontaneous
  Country: GB (occurrence: GB)
  Receive Date: 20160415
  Receipt Date: 20160415
  Transmission Date: 20160815
  Serious: Yes (Hospitalization)
  Sender: FDA-Public Use
  Company Number: GB-SA-2016SA072351

PATIENT
  Age: 78 Year
  Sex: Male

DRUGS (3)
  1. SALINE [Concomitant]
     Active Substance: SODIUM CHLORIDE
     Route: 042
  2. DEXTROSE. [Concomitant]
     Active Substance: DEXTROSE
  3. RASBURICASE [Suspect]
     Active Substance: RASBURICASE
     Indication: TUMOUR LYSIS SYNDROME
     Route: 065

REACTIONS (1)
  - Neutropenic sepsis [Recovered/Resolved]
